FAERS Safety Report 5938064-6 (Version None)
Quarter: 2008Q4

REPORT INFORMATION
  Report Type: 
  Country: None (occurrence: None)
  Receive Date: 20081031
  Receipt Date: 20081024
  Transmission Date: 20090506
  Serious: Yes (Hospitalization)
  Sender: FDA-Public Use
  Company Number: PHHY2008DE23155

PATIENT
  Sex: Female
  Weight: 80 kg

DRUGS (2)
  1. EXFORGE [Suspect]
     Indication: HYPERTENSION
     Dosage: 1 DF, QD
     Dates: start: 20080922, end: 20080923
  2. CEFACLOR [Suspect]

REACTIONS (3)
  - ANAL HAEMORRHAGE [None]
  - COLITIS ISCHAEMIC [None]
  - DIVERTICULUM INTESTINAL HAEMORRHAGIC [None]
